FAERS Safety Report 11114781 (Version 1)
Quarter: 2015Q2

REPORT INFORMATION
  Report Type: Spontaneous
  Country: US (occurrence: US)
  Receive Date: 20150515
  Receipt Date: 20150515
  Transmission Date: 20150821
  Serious: Yes (Hospitalization, Other)
  Sender: FDA-Public Use
  Company Number: US-BRISTOL-MYERS SQUIBB COMPANY-BMS-2015-029672

PATIENT
  Sex: Male
  Weight: 105.21 kg

DRUGS (1)
  1. ELIQUIS [Suspect]
     Active Substance: APIXABAN
     Indication: DEEP VEIN THROMBOSIS
     Dosage: 5 MG, BID
     Route: 048

REACTIONS (8)
  - Fall [Unknown]
  - Fatigue [Unknown]
  - Thrombosis [Unknown]
  - Foot fracture [Unknown]
  - Ventricular extrasystoles [Unknown]
  - Abdominal pain [Unknown]
  - Ligament rupture [Unknown]
  - Deep vein thrombosis [Unknown]
